FAERS Safety Report 14254778 (Version 1)
Quarter: 2017Q4

REPORT INFORMATION
  Report Type: Spontaneous
  Country: US (occurrence: US)
  Receive Date: 20171205
  Receipt Date: 20171205
  Transmission Date: 20180321
  Serious: Yes (Other)
  Sender: FDA-Public Use
  Company Number: None

PATIENT
  Age: 49 Year
  Sex: Female
  Weight: 78.75 kg

DRUGS (5)
  1. HCTZ [Concomitant]
     Active Substance: HYDROCHLOROTHIAZIDE
  2. VERAPAMIL ER [Suspect]
     Active Substance: VERAPAMIL HYDROCHLORIDE
     Indication: HYPOAESTHESIA
     Dosage: ?          QUANTITY:30 TABLET(S);?
     Route: 048
     Dates: end: 20171201
  3. LOSARTAN. [Concomitant]
     Active Substance: LOSARTAN
  4. MULTI VITAMINS [Concomitant]
     Active Substance: VITAMINS
  5. TRIGOSAMINE [Concomitant]
     Active Substance: GLUCOSAMINE\HYALURONATE SODIUM

REACTIONS (2)
  - Hypoaesthesia [None]
  - Motor dysfunction [None]

NARRATIVE: CASE EVENT DATE: 20171201
